FAERS Safety Report 23686562 (Version 1)
Quarter: 2024Q1

REPORT INFORMATION
  Report Type: Spontaneous
  Country: US (occurrence: US)
  Receive Date: 20240329
  Receipt Date: 20240329
  Transmission Date: 20240409
  Serious: Yes (Other)
  Sender: FDA-Public Use
  Company Number: US-BRISTOL-MYERS SQUIBB COMPANY-2024-010707

PATIENT
  Age: 61 Year
  Sex: Male

DRUGS (2)
  1. POMALYST [Suspect]
     Active Substance: POMALIDOMIDE
     Indication: Plasma cell myeloma
     Dosage: FREQUENCY: TAKE 1 CAPSULE WHOLE BY MOUTH WITH WATER, W/ OR W/O FOOD, AT SAME TIME DAILY ON DAYS 1-21
     Route: 048
  2. POMALYST [Suspect]
     Active Substance: POMALIDOMIDE
     Dosage: FREQUENCY: TAKE 1 CAPSULE WHOLE BY MOUTH WITH WATER, W/ OR W/O FOOD, AT SAME TIME DAILY ON DAYS 1-21
     Route: 048

REACTIONS (2)
  - Blood potassium decreased [Recovering/Resolving]
  - White blood cell disorder [Unknown]
